FAERS Safety Report 10049992 (Version 2)
Quarter: 2014Q2

REPORT INFORMATION
  Report Type: Spontaneous
  Country: DE (occurrence: DE)
  Receive Date: 20140401
  Receipt Date: 20140411
  Transmission Date: 20141212
  Serious: Yes (Death, Life-Threatening, Other)
  Sender: FDA-Public Use
  Company Number: DE-B.I. PHARMACEUTICALS,INC./RIDGEFIELD-2014-BI-14032DE

PATIENT
  Sex: Female
  Weight: 78 kg

DRUGS (6)
  1. PRADAXA [Suspect]
     Indication: ATRIAL FIBRILLATION
     Dosage: 220 MG
     Route: 065
  2. DELIX 5 PLUS [Concomitant]
     Dosage: 1 ANZ
     Route: 065
  3. METOHEXAL 47.5 [Concomitant]
     Dosage: 2 ANZ
     Route: 065
  4. CESIX 20 [Concomitant]
     Dosage: 1 ANZ
     Route: 065
  5. NAFTICONG 200 [Concomitant]
     Dosage: 3 ANZ
     Route: 065
  6. JODID 200 [Concomitant]
     Dosage: 1 ANZ
     Route: 065

REACTIONS (7)
  - Multi-organ failure [Fatal]
  - Haemorrhage [Fatal]
  - Acute abdomen [Fatal]
  - Colon gangrene [Fatal]
  - Renal failure [Unknown]
  - Sepsis [Unknown]
  - Renal failure [Unknown]
